FAERS Safety Report 17016343 (Version 5)
Quarter: 2021Q4

REPORT INFORMATION
  Report Type: Spontaneous
  Country: MX (occurrence: MX)
  Receive Date: 20191111
  Receipt Date: 20211111
  Transmission Date: 20220303
  Serious: Yes (Death, Hospitalization)
  Sender: FDA-Public Use
  Company Number: MX-TEVA-2019-MX-1132165

PATIENT
  Age: 40 Year
  Sex: Female

DRUGS (11)
  1. CISPLATIN [Suspect]
     Active Substance: CISPLATIN
     Indication: Metastases to peritoneum
     Dosage: UNK (HYPERTHERMAL INTRAPERITONEAL CHEMOTHERAPY)
     Route: 065
     Dates: start: 201605
  2. DOCETAXEL [Suspect]
     Active Substance: DOCETAXEL
     Indication: Metastases to peritoneum
     Dosage: UNK (MONOTHERAPY)
     Route: 065
  3. DOXORUBICIN HYDROCHLORIDE [Suspect]
     Active Substance: DOXORUBICIN HYDROCHLORIDE
     Indication: Metastases to peritoneum
     Dosage: UNK, CYCLIC (3 CYCLES)
     Route: 065
  4. PACLITAXEL [Suspect]
     Active Substance: PACLITAXEL
     Indication: Ovarian cancer
     Dosage: UNK, CYCLIC (6 CYCLES)
     Route: 065
  5. PACLITAXEL [Suspect]
     Active Substance: PACLITAXEL
     Indication: Metastases to peritoneum
  6. CARBOPLATIN [Suspect]
     Active Substance: CARBOPLATIN
     Indication: Metastases to peritoneum
     Dosage: UNK, CYCLIC (6 CYCLES)
     Route: 065
  7. CARBOPLATIN [Suspect]
     Active Substance: CARBOPLATIN
     Dosage: UNK (3 CYCLES)
  8. MITOMYCIN C [Suspect]
     Active Substance: MITOMYCIN
     Indication: Ovarian cancer
     Dosage: UNK (HYPERTHERMAL INTRAPERITONEAL CHEMOTHERAPY)
     Route: 065
     Dates: start: 201605
  9. MITOMYCIN C [Suspect]
     Active Substance: MITOMYCIN
     Indication: Metastases to peritoneum
  10. BEVACIZUMAB [Suspect]
     Active Substance: BEVACIZUMAB
     Indication: Ovarian cancer
     Dosage: UNK, CYCLIC (3 CYCLES)
     Route: 065
  11. BEVACIZUMAB [Suspect]
     Active Substance: BEVACIZUMAB
     Indication: Metastases to peritoneum

REACTIONS (4)
  - Hypotension [Fatal]
  - Ileus paralytic [Fatal]
  - Bone marrow failure [Fatal]
  - Intestinal perforation [Recovered/Resolved]

NARRATIVE: CASE EVENT DATE: 20160101
